FAERS Safety Report 21063964 (Version 1)
Quarter: 2022Q3

REPORT INFORMATION
  Report Type: Spontaneous
  Country: US (occurrence: None)
  Receive Date: 20220708
  Receipt Date: 20220708
  Transmission Date: 20221027
  Serious: Yes (Other)
  Sender: FDA-Public Use
  Company Number: None

PATIENT
  Age: 66 Year
  Sex: Male

DRUGS (1)
  1. ERLOTINIB [Suspect]
     Active Substance: ERLOTINIB
     Dosage: 100MG DAILY ORAL
     Route: 048
     Dates: start: 202202

REACTIONS (7)
  - Abdominal pain [None]
  - Discomfort [None]
  - Gastrooesophageal reflux disease [None]
  - Vomiting [None]
  - Decreased appetite [None]
  - Weight decreased [None]
  - Drug ineffective [None]

NARRATIVE: CASE EVENT DATE: 20220708
